FAERS Safety Report 17025402 (Version 1)
Quarter: 2019Q4

REPORT INFORMATION
  Report Type: Spontaneous
  Country: CN (occurrence: CN)
  Receive Date: 20191113
  Receipt Date: 20191113
  Transmission Date: 20200122
  Serious: Yes (Other)
  Sender: FDA-Public Use
  Company Number: CN-PFIZER INC-2019483016

PATIENT
  Age: 63 Year
  Sex: Female
  Weight: 61 kg

DRUGS (1)
  1. CELEBREX [Suspect]
     Active Substance: CELECOXIB
     Indication: ANALGESIC THERAPY
     Dosage: 0.2 G, 2X/DAY
     Route: 048
     Dates: start: 20191104, end: 20191105

REACTIONS (3)
  - Flushing [Recovering/Resolving]
  - Pruritus [Recovering/Resolving]
  - Macule [Recovering/Resolving]

NARRATIVE: CASE EVENT DATE: 20191105
